FAERS Safety Report 4454113-9 (Version None)
Quarter: 2004Q3

REPORT INFORMATION
  Report Type: 
  Country: None (occurrence: None)
  Receive Date: 20040827
  Receipt Date: 20040827
  Transmission Date: 20050211
  Serious: Yes (Other)
  Sender: FDA-Public Use
  Company Number: None

PATIENT
  Age: 84 Year
  Sex: Female

DRUGS (5)
  1. SULAR [Suspect]
     Indication: HYPERTENSION
     Dosage: 20 MG, QD PO
     Route: 048
  2. COZAAR [Concomitant]
  3. FUROSONIDE [Concomitant]
  4. ATENOLOL [Concomitant]
  5. TYLENOL [Concomitant]

REACTIONS (3)
  - CONDITION AGGRAVATED [None]
  - HYPOGEUSIA [None]
  - PAROSMIA [None]
